FAERS Safety Report 23789787 (Version 2)
Quarter: 2025Q4

REPORT INFORMATION
  Report Type: Report from Study
  Country: CO (occurrence: CO)
  Receive Date: 20240426
  Receipt Date: 20251009
  Transmission Date: 20260117
  Serious: No
  Sender: TAKEDA
  Company Number: CO-TAKEDA-2023TUS038221

PATIENT
  Age: 61 Year
  Sex: Female
  Weight: 79 kg

DRUGS (4)
  1. LANADELUMAB [Suspect]
     Active Substance: LANADELUMAB
     Indication: Hereditary angioedema
     Dosage: 300 MILLIGRAM, Q2WEEKS
  2. LANADELUMAB [Suspect]
     Active Substance: LANADELUMAB
     Dosage: 300 MILLIGRAM, MONTHLY
     Dates: start: 20221021
  3. FIRAZYR [Suspect]
     Active Substance: ICATIBANT ACETATE
     Indication: Hereditary angioedema
     Dosage: 30 MILLIGRAM
  4. FIRAZYR [Suspect]
     Active Substance: ICATIBANT ACETATE
     Dosage: UNK

REACTIONS (3)
  - Post procedural complication [Unknown]
  - Weight increased [Unknown]
  - Body height decreased [Unknown]

NARRATIVE: CASE EVENT DATE: 20251002
